FAERS Safety Report 18832094 (Version 2)
Quarter: 2021Q2

REPORT INFORMATION
  Report Type: Spontaneous
  Country: JP (occurrence: JP)
  Receive Date: 20210203
  Receipt Date: 20210616
  Transmission Date: 20210717
  Serious: Yes (Hospitalization, Disabling, Other)
  Sender: FDA-Public Use
  Company Number: NVSJ2021JP001664

PATIENT
  Age: 70 Year
  Sex: Female
  Weight: 58 kg

DRUGS (11)
  1. ZOMETA [Suspect]
     Active Substance: ZOLEDRONIC ACID
     Indication: BREAST CANCER METASTATIC
     Dosage: 4 MG
     Route: 041
     Dates: start: 201605, end: 201705
  2. FEMARA [Suspect]
     Active Substance: LETROZOLE
     Indication: METASTASES TO BONE
  3. TAMOXIFEN [Concomitant]
     Active Substance: TAMOXIFEN
     Indication: BREAST CANCER METASTATIC
     Dosage: 20 MG, QD
     Route: 048
     Dates: start: 201505, end: 202007
  4. TAMOXIFEN [Concomitant]
     Active Substance: TAMOXIFEN
     Indication: METASTASES TO BONE
  5. TELMISARTAN. [Concomitant]
     Active Substance: TELMISARTAN
     Indication: HYPERTENSION
     Dosage: 40 MG, QD
     Route: 048
  6. ZOMETA [Suspect]
     Active Substance: ZOLEDRONIC ACID
     Indication: METASTASES TO BONE
     Dosage: 4 MG, ONCE A MONTH
     Route: 041
     Dates: start: 201104, end: 201604
  7. AROMASIN [Concomitant]
     Active Substance: EXEMESTANE
     Indication: BREAST CANCER METASTATIC
     Dosage: 25 MG, QD
     Route: 048
     Dates: start: 202007
  8. AROMASIN [Concomitant]
     Active Substance: EXEMESTANE
     Indication: METASTASES TO BONE
  9. AMLODIPINE [Concomitant]
     Active Substance: AMLODIPINE BESYLATE
     Indication: HYPERTENSION
     Dosage: 2.5 MG, QD
     Route: 048
  10. ZOLPIDEM [Concomitant]
     Active Substance: ZOLPIDEM TARTRATE
     Indication: INSOMNIA
     Dosage: 5 MG, QD
     Route: 048
  11. FEMARA [Suspect]
     Active Substance: LETROZOLE
     Indication: BREAST CANCER METASTATIC
     Dosage: 2.5 MG, QD
     Route: 048
     Dates: start: 201104, end: 201505

REACTIONS (5)
  - Osteonecrosis of jaw [Not Recovered/Not Resolved]
  - Atypical femur fracture [Recovering/Resolving]
  - Bone pain [Unknown]
  - Osteomyelitis [Unknown]
  - Osteoporosis [Unknown]

NARRATIVE: CASE EVENT DATE: 201612
